FAERS Safety Report 14535840 (Version 3)
Quarter: 2018Q3

REPORT INFORMATION
  Report Type: Spontaneous
  Country: US (occurrence: US)
  Receive Date: 20180215
  Receipt Date: 20180807
  Transmission Date: 20181010
  Serious: No
  Sender: FDA-Public Use
  Company Number: US-RADIUS HEALTH INC.-2017US000310

PATIENT
  Age: 74 Year
  Sex: Female
  Weight: 40 kg

DRUGS (2)
  1. TYMLOS [Suspect]
     Active Substance: ABALOPARATIDE
     Indication: OSTEOPOROSIS POSTMENOPAUSAL
     Dosage: 80 MCG; DAILY
     Route: 058
     Dates: start: 20170802, end: 201710
  2. TYMLOS [Suspect]
     Active Substance: ABALOPARATIDE
     Dosage: 80 MCG DAILY
     Route: 058

REACTIONS (1)
  - Eczema [Unknown]

NARRATIVE: CASE EVENT DATE: 201710
